FAERS Safety Report 6834353-1 (Version None)
Quarter: 2010Q3

REPORT INFORMATION
  Report Type: 
  Country: None (occurrence: None)
  Receive Date: 20100712
  Receipt Date: 20070602
  Transmission Date: 20110219
  Serious: No
  Sender: FDA-Public Use
  Company Number: US-PFIZER INC-2007030628

PATIENT
  Sex: Female

DRUGS (6)
  1. CHANTIX [Suspect]
     Indication: SMOKING CESSATION THERAPY
     Route: 048
     Dates: start: 20070414
  2. ABILIFY [Concomitant]
     Route: 048
  3. LITHIUM [Concomitant]
     Route: 048
  4. LAMICTAL [Concomitant]
     Route: 048
  5. XANAX [Concomitant]
     Route: 048
  6. LEXAPRO [Concomitant]
     Route: 048

REACTIONS (3)
  - MALAISE [None]
  - NAUSEA [None]
  - NERVOUSNESS [None]
